FAERS Safety Report 5533985-0 (Version None)
Quarter: 2007Q4

REPORT INFORMATION
  Report Type: 
  Country: None (occurrence: None)
  Receive Date: 20071130
  Receipt Date: 20071126
  Transmission Date: 20080405
  Serious: Yes (Other)
  Sender: FDA-Public Use
  Company Number: 2007RL000525

PATIENT
  Age: 73 Year
  Sex: Female

DRUGS (4)
  1. LOVAZA [Suspect]
     Indication: BLOOD TRIGLYCERIDES INCREASED
     Dosage: 2 GM; BID; PO
     Route: 048
     Dates: start: 20050101
  2. ALTACE [Concomitant]
  3. VERAPAMIL [Concomitant]
  4. TENORMIN [Concomitant]

REACTIONS (2)
  - OPERATIVE HAEMORRHAGE [None]
  - SQUAMOUS CELL CARCINOMA OF SKIN [None]
